FAERS Safety Report 5567020-5 (Version None)
Quarter: 2007Q4

REPORT INFORMATION
  Report Type: 
  Country: None (occurrence: None)
  Receive Date: 20071219
  Receipt Date: 20071211
  Transmission Date: 20080405
  Serious: Yes (Hospitalization, Other)
  Sender: FDA-Public Use
  Company Number: JP-ELI_LILLY_AND_COMPANY-JP200709000002

PATIENT
  Sex: Male
  Weight: 50 kg

DRUGS (11)
  1. GEMCITABINE HCL [Suspect]
     Indication: PANCREATIC CARCINOMA NON-RESECTABLE
     Dosage: 1000 MG/M2, OTHER
     Route: 042
     Dates: start: 20070712, end: 20070914
  2. GEMCITABINE HCL [Suspect]
     Dosage: 1000 MG, OTHER
     Route: 042
     Dates: start: 20071012, end: 20071116
  3. TARCEVA [Suspect]
     Indication: PANCREATIC CARCINOMA NON-RESECTABLE
     Dosage: 100 MG, DAILY (1/D)
     Route: 048
     Dates: start: 20070712, end: 20070928
  4. TARCEVA [Suspect]
     Dosage: 100 MG, DAILY (1/D)
     Route: 048
     Dates: start: 20071012, end: 20071207
  5. FOIPAN [Concomitant]
     Dosage: 200 MG, 3/D
     Route: 048
     Dates: start: 20070711, end: 20070824
  6. FOIPAN [Concomitant]
     Dosage: 200 MG, 3/D
     Route: 048
     Dates: start: 20070830
  7. PROTECADIN /JPN/ [Concomitant]
     Indication: PROPHYLAXIS
     Dosage: 1 D/F, 2/D
     Route: 048
     Dates: start: 20070711, end: 20070824
  8. PROTECADIN /JPN/ [Concomitant]
     Dosage: 1 D/F, 2/D
     Route: 048
     Dates: start: 20070830
  9. MAGNESIUM OXIDE [Concomitant]
     Indication: CONSTIPATION
     Dosage: UNK, AS NEEDED
     Route: 048
     Dates: start: 20070723, end: 20070824
  10. MAGNESIUM OXIDE [Concomitant]
     Dosage: UNK, AS NEEDED
     Route: 048
     Dates: start: 20070830
  11. GASMOTIN [Concomitant]
     Dosage: 1 D/F, 3/D
     Route: 048
     Dates: start: 20070830

REACTIONS (4)
  - MEDIASTINITIS [None]
  - PANCREATITIS [None]
  - PANCREATITIS RELAPSING [None]
  - PNEUMATOSIS [None]
